FAERS Safety Report 6675444-8 (Version None)
Quarter: 2010Q2

REPORT INFORMATION
  Report Type: 
  Country: None (occurrence: None)
  Receive Date: 20100409
  Receipt Date: 20100401
  Transmission Date: 20101027
  Serious: Yes (Other)
  Sender: FDA-Public Use
  Company Number: A0850681A

PATIENT
  Sex: Female

DRUGS (10)
  1. LAMICTAL CD [Suspect]
     Indication: PARTIAL SEIZURES
     Dosage: 150MG PER DAY
     Route: 048
  2. DILTIAZEM HCL [Concomitant]
  3. CRESTOR [Concomitant]
  4. DIGOXIN [Concomitant]
  5. NEXIUM [Concomitant]
  6. IRON TABLETS [Concomitant]
  7. FOLIC ACID [Concomitant]
  8. ASPIRIN [Concomitant]
  9. LYRICA [Concomitant]
  10. RAZADYNE [Concomitant]

REACTIONS (7)
  - ASTHENIA [None]
  - BLINDNESS UNILATERAL [None]
  - CATARACT [None]
  - CONVULSION [None]
  - DRUG INEFFECTIVE [None]
  - FATIGUE [None]
  - RETINAL OPERATION [None]
